FAERS Safety Report 17606126 (Version 2)
Quarter: 2020Q2

REPORT INFORMATION
  Report Type: Report from Study
  Country: DE (occurrence: DE)
  Receive Date: 20200331
  Receipt Date: 20200401
  Transmission Date: 20200713
  Serious: Yes (Death, Hospitalization)
  Sender: FDA-Public Use
  Company Number: DE-BIOGEN-2020BI00853874

PATIENT
  Age: 61 Year
  Sex: Male

DRUGS (1)
  1. PLEGRIDY [Suspect]
     Active Substance: PEGINTERFERON BETA-1A
     Indication: MULTIPLE SCLEROSIS
     Route: 058
     Dates: start: 20171108

REACTIONS (5)
  - Lung hyperinflation [Fatal]
  - Bladder disorder [Recovered/Resolved]
  - Cardiac disorder [Fatal]
  - Device issue [Recovered/Resolved]
  - Cough [Fatal]

NARRATIVE: CASE EVENT DATE: 20200212
